FAERS Safety Report 12109817 (Version 1)
Quarter: 2016Q1

REPORT INFORMATION
  Report Type: Spontaneous
  Country: US (occurrence: US)
  Receive Date: 20160224
  Receipt Date: 20160224
  Transmission Date: 20160526
  Serious: Yes (Other)
  Sender: FDA-Public Use
  Company Number: US-NEW HAVEN PHARMACEUTICALS, INC-NHP201602-000021

PATIENT
  Sex: Male

DRUGS (1)
  1. DURLAZA [Suspect]
     Active Substance: ASPIRIN
     Indication: PRODUCT USED FOR UNKNOWN INDICATION
     Dates: start: 2016

REACTIONS (4)
  - Vomiting [Unknown]
  - Conjunctival haemorrhage [Unknown]
  - Prostate cancer recurrent [Unknown]
  - Nausea [Unknown]

NARRATIVE: CASE EVENT DATE: 20160208
